FAERS Safety Report 24547255 (Version 1)
Quarter: 2024Q4

REPORT INFORMATION
  Report Type: Spontaneous
  Country: US (occurrence: US)
  Receive Date: 20241025
  Receipt Date: 20241025
  Transmission Date: 20250114
  Serious: Yes (Hospitalization, Other)
  Sender: SANOFI AVENTIS
  Company Number: US-SA-2024SA305968

PATIENT
  Age: 76 Year
  Sex: Female

DRUGS (1)
  1. DUPIXENT [Suspect]
     Active Substance: DUPILUMAB
     Indication: Eczema
     Dosage: 300 MG, QOW
     Route: 058
     Dates: start: 20231205

REACTIONS (6)
  - Small intestinal obstruction [Unknown]
  - Muscle spasms [Unknown]
  - Flatulence [Unknown]
  - Vomiting [Unknown]
  - Cystitis [Unknown]
  - Dysuria [Unknown]

NARRATIVE: CASE EVENT DATE: 20240101
